FAERS Safety Report 4685199-4 (Version None)
Quarter: 2005Q2

REPORT INFORMATION
  Report Type: 
  Country: None (occurrence: None)
  Receive Date: 20050608
  Receipt Date: 20050401
  Transmission Date: 20051028
  Serious: Yes (Life-Threatening, Hospitalization)
  Sender: FDA-Public Use
  Company Number: PHRM2005FR01230

PATIENT
  Age: 78 Year
  Sex: Female
  Weight: 72 kg

DRUGS (6)
  1. TEGRETOL [Concomitant]
     Indication: CONVULSION
     Dosage: 200 MG, BID
     Route: 048
     Dates: start: 20030301
  2. LESCOL [Suspect]
     Indication: HYPERCHOLESTEROLAEMIA
     Dosage: 80 MG, QD
     Route: 048
     Dates: end: 20050201
  3. PREVISCAN [Concomitant]
     Indication: EMBOLISM
     Route: 048
     Dates: start: 20040301
  4. MEDIATENSYL [Concomitant]
     Indication: HYPERTENSION
     Dosage: UNK, UNK
     Route: 048
     Dates: start: 20040301
  5. COAPROVEL [Concomitant]
     Indication: HYPERTENSION
     Dates: start: 20040301
  6. EPITOMAX [Concomitant]
     Indication: CONVULSION
     Route: 048
     Dates: start: 20040301

REACTIONS (3)
  - BLOOD CHOLESTEROL INCREASED [None]
  - COMA [None]
  - STATUS EPILEPTICUS [None]
